FAERS Safety Report 4851332-4 (Version None)
Quarter: 2005Q4

REPORT INFORMATION
  Report Type: 
  Country: None (occurrence: None)
  Receive Date: 20051212
  Receipt Date: 20051020
  Transmission Date: 20060501
  Serious: Yes (Other)
  Sender: FDA-Public Use
  Company Number: PHBS2005IE15467

PATIENT
  Age: 8 Year
  Sex: Female

DRUGS (2)
  1. RITALIN [Suspect]
     Indication: ATTENTION DEFICIT/HYPERACTIVITY DISORDER
     Dosage: 5 MG, QHS
     Route: 048
     Dates: start: 20050922
  2. CONCERTA [Suspect]
     Dates: start: 20050823

REACTIONS (3)
  - IRRITABILITY [None]
  - SUICIDAL IDEATION [None]
  - TEARFULNESS [None]
